FAERS Safety Report 12722334 (Version 1)
Quarter: 2016Q3

REPORT INFORMATION
  Report Type: Spontaneous
  Country: US (occurrence: US)
  Receive Date: 20160907
  Receipt Date: 20160907
  Transmission Date: 20161109
  Serious: Yes (Hospitalization, Other)
  Sender: FDA-Public Use
  Company Number: US-SHIRE-US201611320

PATIENT
  Age: 53 Year
  Sex: Female

DRUGS (1)
  1. GATTEX [Suspect]
     Active Substance: TEDUGLUTIDE\WATER
     Indication: PRODUCT USED FOR UNKNOWN INDICATION
     Dosage: 0.25 ML, 1X/DAY:QD
     Route: 058
     Dates: start: 20160802, end: 20160819

REACTIONS (2)
  - Retinal detachment [Unknown]
  - Visual impairment [Unknown]

NARRATIVE: CASE EVENT DATE: 20160819
